FAERS Safety Report 6019021-0 (Version None)
Quarter: 2008Q4

REPORT INFORMATION
  Report Type: 
  Country: None (occurrence: None)
  Receive Date: 20081224
  Receipt Date: 20081216
  Transmission Date: 20090506
  Serious: Yes (Hospitalization, Other)
  Sender: FDA-Public Use
  Company Number: US-JNJFOC-20081005147

PATIENT
  Sex: Female

DRUGS (5)
  1. REMICADE [Suspect]
     Indication: PYODERMA GANGRENOSUM
     Route: 042
  2. REMICADE [Suspect]
     Indication: CROHN'S DISEASE
     Dosage: 2 INDUCTION DOSES OF INFLIXIMAB IN SEP-2008
     Route: 042
  3. PREDNISONE [Concomitant]
     Indication: CROHN'S DISEASE
  4. FOSAMAX [Concomitant]
     Indication: OSTEOPOROSIS
  5. OMEPRAZOLE [Concomitant]

REACTIONS (1)
  - PNEUMOCYSTIS JIROVECI PNEUMONIA [None]
